FAERS Safety Report 9917848 (Version 2)
Quarter: 2014Q1

REPORT INFORMATION
  Report Type: Spontaneous
  Country: US (occurrence: US)
  Receive Date: 20140221
  Receipt Date: 20140305
  Transmission Date: 20141002
  Serious: Yes (Hospitalization)
  Sender: FDA-Public Use
  Company Number: US-GLAXOSMITHKLINE-A1061761A

PATIENT
  Age: 68 Year
  Sex: Male

DRUGS (1)
  1. PROMACTA [Suspect]
     Indication: PRODUCT USED FOR UNKNOWN INDICATION
     Dosage: 75MG UNKNOWN
     Route: 065
     Dates: start: 20130213

REACTIONS (5)
  - Treatment noncompliance [Unknown]
  - Pyrexia [Unknown]
  - Dehydration [Unknown]
  - Staphylococcal sepsis [Recovered/Resolved]
  - Aplastic anaemia [Unknown]
